FAERS Safety Report 19803811 (Version 1)
Quarter: 2021Q3

REPORT INFORMATION
  Report Type: Spontaneous
  Country: US (occurrence: US)
  Receive Date: 20210908
  Receipt Date: 20210908
  Transmission Date: 20211014
  Serious: No
  Sender: FDA-Public Use
  Company Number: US-LUPIN PHARMACEUTICALS INC.-2021-16408

PATIENT
  Age: 37 Year
  Sex: Female

DRUGS (6)
  1. CLOMIPRAMINE [Suspect]
     Active Substance: CLOMIPRAMINE
     Indication: OBSESSIVE-COMPULSIVE DISORDER
     Dosage: 100 MILLIGRAM
     Route: 065
  2. ESCITALOPRAM [Suspect]
     Active Substance: ESCITALOPRAM OXALATE
     Indication: OBSESSIVE-COMPULSIVE DISORDER
     Dosage: 30 MILLIGRAM
     Route: 065
  3. PHENELZINE [Suspect]
     Active Substance: PHENELZINE
     Dosage: 60 MILLIGRAM, QD, IN TWO DIVIDED DOSES; TREATMENT STOPPED AFTER 4 WEEKS
     Route: 065
  4. PHENELZINE [Suspect]
     Active Substance: PHENELZINE
     Indication: OBSESSIVE-COMPULSIVE DISORDER
     Dosage: 15 MILLIGRAM, BID
     Route: 065
  5. FLUOXETINE [Suspect]
     Active Substance: FLUOXETINE HYDROCHLORIDE
     Indication: OBSESSIVE-COMPULSIVE DISORDER
     Dosage: 80 MILLIGRAM
     Route: 065
  6. CLONAZEPAM. [Suspect]
     Active Substance: CLONAZEPAM
     Indication: OBSESSIVE-COMPULSIVE DISORDER
     Dosage: 1 MILLIGRAM
     Route: 065

REACTIONS (2)
  - Drug resistance [Unknown]
  - Off label use [Unknown]
